FAERS Safety Report 10034085 (Version 2)
Quarter: 2014Q2

REPORT INFORMATION
  Report Type: Spontaneous
  Country: FR (occurrence: FR)
  Receive Date: 20140325
  Receipt Date: 20140404
  Transmission Date: 20141212
  Serious: Yes (Hospitalization, Other)
  Sender: FDA-Public Use
  Company Number: FR-ORION CORPORATION ORION PHARMA-ENTC2014-0099

PATIENT
  Age: 72 Year
  Sex: Male
  Weight: 44 kg

DRUGS (6)
  1. LEVODOPA-CARBIDOPA-ENTACAPONE [Suspect]
     Indication: PARKINSON^S DISEASE
     Dosage: STRENGTH: 200/50/200 MG
     Route: 065
  2. REQUIP [Suspect]
     Indication: PARKINSON^S DISEASE
     Route: 065
  3. MODOPAR [Suspect]
     Indication: PARKINSON^S DISEASE
     Dosage: 100/25 MG
     Route: 065
  4. SKENAN [Concomitant]
     Route: 065
  5. ACTISKENAN [Concomitant]
     Indication: SCIATICA
     Route: 065
  6. FORLAX [Concomitant]
     Indication: CONSTIPATION
     Route: 065

REACTIONS (8)
  - Clostridium difficile colitis [Unknown]
  - General physical health deterioration [Unknown]
  - Asthenia [Unknown]
  - Cachexia [Unknown]
  - Hypothermia [Unknown]
  - Hypotension [Unknown]
  - Renal impairment [Unknown]
  - Anaemia [Unknown]
